FAERS Safety Report 6640631-1 (Version None)
Quarter: 2010Q1

REPORT INFORMATION
  Report Type: 
  Country: None (occurrence: None)
  Receive Date: 20100318
  Receipt Date: 20100305
  Transmission Date: 20100710
  Serious: Yes (Hospitalization, Other)
  Sender: FDA-Public Use
  Company Number: US-ELI_LILLY_AND_COMPANY-US200906000719

PATIENT
  Sex: Female
  Weight: 101.13 kg

DRUGS (9)
  1. BYETTA [Suspect]
     Dosage: 5 MG, 2/D
     Route: 058
     Dates: start: 20070501, end: 20070101
  2. BYETTA [Suspect]
     Dosage: 10 MG, 2/D
     Route: 058
     Dates: start: 20070101, end: 20070613
  3. LEXAPRO [Concomitant]
     Indication: DEPRESSION
     Dosage: 20 MG, DAILY (1/D)
     Route: 048
     Dates: start: 20061201
  4. NEXIUM [Concomitant]
     Indication: DYSPEPSIA
  5. METFORMIN HYDROCHLORIDE [Concomitant]
     Indication: TYPE 2 DIABETES MELLITUS
     Dosage: 500 MG, 2/D
     Route: 048
     Dates: start: 20061201
  6. ASPIRIN [Concomitant]
     Dosage: 81 MG, DAILY (1/D)
     Route: 048
  7. FLEXERIL [Concomitant]
     Dosage: 10 MG, DAILY (1/D)
     Route: 048
  8. IBUPROFEN [Concomitant]
     Dosage: 600 MG, DAILY (1/D)
     Route: 048
  9. COZAAR [Concomitant]
     Dosage: 1 D/F, DAILY (1/D)

REACTIONS (2)
  - PANCREATITIS ACUTE [None]
  - RENAL FAILURE [None]
